FAERS Safety Report 4856237-0 (Version None)
Quarter: 2005Q4

REPORT INFORMATION
  Report Type: 
  Country: None (occurrence: None)
  Receive Date: 20051215
  Receipt Date: 20051215
  Transmission Date: 20060501
  Serious: Yes (Life-Threatening)
  Sender: FDA-Public Use
  Company Number: None

PATIENT
  Sex: Male
  Weight: 6.3504 kg

DRUGS (1)
  1. OMNICEF [Suspect]
     Indication: OTITIS MEDIA ACUTE
     Dosage: BID   PO
     Route: 048
     Dates: start: 20051125, end: 20051125

REACTIONS (2)
  - DRUG HYPERSENSITIVITY [None]
  - REACTION TO DRUG EXCIPIENTS [None]
